FAERS Safety Report 9511725 (Version 1)
Quarter: 2013Q3

REPORT INFORMATION
  Report Type: Spontaneous
  Country: US (occurrence: None)
  Receive Date: 20130909
  Receipt Date: 20130909
  Transmission Date: 20140515
  Serious: No
  Sender: FDA-Public Use
  Company Number: None

PATIENT
  Age: 36 Year
  Sex: Female

DRUGS (1)
  1. SERTRALINE 200MG [Suspect]
     Dosage: 2 PILLS ONCE DAILY

REACTIONS (12)
  - Drug withdrawal syndrome [None]
  - Cognitive disorder [None]
  - Depressed mood [None]
  - Fatigue [None]
  - Suicidal ideation [None]
  - Headache [None]
  - Muscle tightness [None]
  - Abdominal pain upper [None]
  - Judgement impaired [None]
  - Activities of daily living impaired [None]
  - Weight increased [None]
  - Memory impairment [None]
